FAERS Safety Report 8189434-X (Version None)
Quarter: 2012Q1

REPORT INFORMATION
  Report Type: 
  Country: None (occurrence: None)
  Receive Date: 20120307
  Receipt Date: 20120302
  Transmission Date: 20120608
  Serious: No
  Sender: FDA-Public Use
  Company Number: US-PFIZER INC-2012057092

PATIENT
  Sex: Female
  Weight: 65.8 kg

DRUGS (6)
  1. CYMBALTA [Concomitant]
     Indication: ANXIETY
     Dosage: UNK, DAILY
     Dates: start: 20110101, end: 20120101
  2. THYROID TAB [Concomitant]
     Indication: HYPERTHYROIDISM
     Dosage: UNK, DAILY
  3. CYMBALTA [Concomitant]
     Indication: STRESS
  4. PRISTIQ [Suspect]
     Indication: ANXIETY
     Dosage: 100 MG, DAILY
     Dates: start: 20120201
  5. PRISTIQ [Suspect]
     Indication: STRESS
  6. TIROSINT [Concomitant]
     Indication: HYPERTHYROIDISM
     Dosage: 25 UG, DAILY

REACTIONS (2)
  - BOWEL MOVEMENT IRREGULARITY [None]
  - INSOMNIA [None]
